FAERS Safety Report 12739154 (Version 1)
Quarter: 2016Q3

REPORT INFORMATION
  Report Type: Report from Study
  Country: BR (occurrence: BR)
  Receive Date: 20160913
  Receipt Date: 20160913
  Transmission Date: 20161109
  Serious: Yes (Other)
  Sender: FDA-Public Use
  Company Number: BR-ABBVIE-15K-020-1507851-00

PATIENT
  Sex: Male
  Weight: 81 kg

DRUGS (4)
  1. HUMIRA [Suspect]
     Active Substance: ADALIMUMAB
     Dosage: MAINTENANCE DOSES
     Route: 058
  2. HUMIRA [Suspect]
     Active Substance: ADALIMUMAB
     Dosage: LOADING DOSE
     Route: 058
  3. HUMIRA [Suspect]
     Active Substance: ADALIMUMAB
     Indication: CROHN^S DISEASE
     Route: 058
     Dates: start: 20090105
  4. HUMIRA [Suspect]
     Active Substance: ADALIMUMAB
     Dosage: LOADING DOSE, WEEK TWO
     Route: 058

REACTIONS (16)
  - Gastrointestinal inflammation [Not Recovered/Not Resolved]
  - Arthralgia [Unknown]
  - Post procedural haemorrhage [Unknown]
  - Haemorrhage [Unknown]
  - Diabetes mellitus [Recovering/Resolving]
  - Musculoskeletal pain [Unknown]
  - Arthritis [Unknown]
  - Pain in extremity [Not Recovered/Not Resolved]
  - Vomiting [Unknown]
  - Large intestinal stenosis [Unknown]
  - Pain [Unknown]
  - Weight increased [Unknown]
  - Crohn^s disease [Unknown]
  - Visual impairment [Unknown]
  - Abdominal pain [Not Recovered/Not Resolved]
  - Medication error [Unknown]

NARRATIVE: CASE EVENT DATE: 2013
